FAERS Safety Report 12923337 (Version 2)
Quarter: 2016Q4

REPORT INFORMATION
  Report Type: Spontaneous
  Country: US (occurrence: US)
  Receive Date: 20161108
  Receipt Date: 20161118
  Transmission Date: 20170207
  Serious: Yes (Life-Threatening)
  Sender: FDA-Public Use
  Company Number: US-JNJFOC-20161100137

PATIENT
  Sex: Male

DRUGS (1)
  1. STELARA [Suspect]
     Active Substance: USTEKINUMAB
     Indication: PSORIASIS
     Dosage: HAD 5 DOSES
     Route: 058

REACTIONS (3)
  - Dyspnoea [Recovered/Resolved]
  - Infection [Recovered/Resolved]
  - Psoriasis [Recovered/Resolved]
